FAERS Safety Report 7607752-8 (Version None)
Quarter: 2011Q3

REPORT INFORMATION
  Report Type: 
  Country: None (occurrence: None)
  Receive Date: 20110713
  Receipt Date: 20110613
  Transmission Date: 20111222
  Serious: Yes (Death, Hospitalization)
  Sender: FDA-Public Use
  Company Number: PHHO2006US20206

PATIENT
  Sex: Male
  Weight: 82.55 kg

DRUGS (3)
  1. MYCOPHENOLATE MEFETIL [Suspect]
     Indication: HEART TRANSPLANT
     Dosage: 3000 MG, QD
     Route: 048
     Dates: start: 20060819, end: 20061204
  2. MYCOPHENOLATE MEFETIL [Suspect]
     Dosage: 3000 MG, QD
     Route: 048
     Dates: start: 20061224
  3. NEORAL [Suspect]
     Indication: HEART TRANSPLANT
     Dosage: 150 MG, BID
     Route: 048
     Dates: start: 20060819

REACTIONS (28)
  - ENTEROBACTER INFECTION [None]
  - RESPIRATORY DISTRESS [None]
  - HEART TRANSPLANT REJECTION [None]
  - KLEBSIELLA INFECTION [None]
  - CHILLS [None]
  - ABDOMINAL PAIN [None]
  - CYTOMEGALOVIRUS INFECTION [None]
  - PYREXIA [None]
  - DYSPNOEA [None]
  - NIGHT SWEATS [None]
  - NAUSEA [None]
  - HYPOPHAGIA [None]
  - FUNGAL ABSCESS CENTRAL NERVOUS SYSTEM [None]
  - CARDIAC ARREST [None]
  - HYPOTENSION [None]
  - HEPATIC ENZYME INCREASED [None]
  - INFUSION SITE ISCHAEMIA [None]
  - SERRATIA INFECTION [None]
  - CYTOMEGALOVIRUS COLITIS [None]
  - BLOOD CREATININE INCREASED [None]
  - DEEP VEIN THROMBOSIS [None]
  - DISEASE PROGRESSION [None]
  - TACHYCARDIA [None]
  - RENAL FAILURE ACUTE [None]
  - STAPHYLOCOCCAL INFECTION [None]
  - VOMITING [None]
  - DIARRHOEA [None]
  - BRADYCARDIA [None]
